FAERS Safety Report 18385098 (Version 2)
Quarter: 2020Q4

REPORT INFORMATION
  Report Type: Spontaneous
  Country: RO (occurrence: RO)
  Receive Date: 20201015
  Receipt Date: 20201110
  Transmission Date: 20210114
  Serious: Yes (Death)
  Sender: FDA-Public Use
  Company Number: RO-BAXTER-2020BAX014598

PATIENT
  Age: 66 Year
  Sex: Female

DRUGS (6)
  1. VINCRISTINE [Concomitant]
     Active Substance: VINCRISTINE
     Indication: RICHTER^S SYNDROME
     Route: 065
     Dates: start: 201812
  2. DOXIL [Suspect]
     Active Substance: DOXORUBICIN HYDROCHLORIDE
     Indication: RICHTER^S SYNDROME
     Route: 065
     Dates: start: 201812
  3. RITUXIMAB. [Concomitant]
     Active Substance: RITUXIMAB
     Indication: RICHTER^S SYNDROME
     Route: 065
  4. CYCLOPHOSPHAMIDE. [Concomitant]
     Active Substance: CYCLOPHOSPHAMIDE
     Indication: RICHTER^S SYNDROME
     Route: 065
     Dates: start: 201812
  5. PREDNISONE. [Concomitant]
     Active Substance: PREDNISONE
     Indication: RICHTER^S SYNDROME
     Route: 065
  6. DEXAMETHASONE. [Concomitant]
     Active Substance: DEXAMETHASONE
     Indication: RICHTER^S SYNDROME
     Route: 065
     Dates: start: 201812

REACTIONS (2)
  - Quality of life decreased [Unknown]
  - Death [Fatal]

NARRATIVE: CASE EVENT DATE: 201903
